FAERS Safety Report 4389548-6 (Version None)
Quarter: 2004Q2

REPORT INFORMATION
  Report Type: 
  Country: None (occurrence: None)
  Receive Date: 20040629
  Receipt Date: 20030509
  Transmission Date: 20050107
  Serious: Yes (Hospitalization)
  Sender: FDA-Public Use
  Company Number: NSADSS2003022763

PATIENT
  Age: 91 Year
  Sex: Female

DRUGS (1)
  1. DURAGESIC [Suspect]
     Indication: PAIN
     Dosage: 50 UG/HR, TRANSDERMAL
     Route: 062
     Dates: start: 20030506, end: 20030507

REACTIONS (2)
  - HYPOVENTILATION [None]
  - SEDATION [None]
